FAERS Safety Report 7869971-5 (Version None)
Quarter: 2011Q4

REPORT INFORMATION
  Report Type: 
  Country: None (occurrence: None)
  Receive Date: 20111028
  Receipt Date: 20111028
  Transmission Date: 20120403
  Serious: Yes (Other)
  Sender: FDA-Public Use
  Company Number: None

PATIENT
  Sex: Male
  Weight: 86.1834 kg

DRUGS (9)
  1. HYDRCHLOROTHIAZIDE [Concomitant]
  2. FUROSEMIDE [Concomitant]
  3. PREDNISONE [Concomitant]
  4. ZYTIGA [Suspect]
     Indication: PROSTATE CANCER
     Dosage: 1000MG DAILY BY MOUTH
     Route: 048
     Dates: start: 20111006, end: 20111026
  5. KLOR-CON [Concomitant]
  6. WARFARIN [Concomitant]
  7. LIPITOR [Concomitant]
  8. OSTEO BIFLEX [Concomitant]
  9. ACETAMINOPHEN [Concomitant]

REACTIONS (2)
  - VISION BLURRED [None]
  - DIZZINESS [None]
